FAERS Safety Report 23675742 (Version 3)
Quarter: 2024Q3

REPORT INFORMATION
  Report Type: Spontaneous
  Country: US (occurrence: US)
  Receive Date: 20240327
  Receipt Date: 20240725
  Transmission Date: 20241016
  Serious: No
  Sender: BRISTOL MYERS SQUIBB
  Company Number: US-BRISTOL-MYERS SQUIBB COMPANY-2024-048726

PATIENT
  Age: 90 Year
  Sex: Female

DRUGS (3)
  1. REVLIMID [Suspect]
     Active Substance: LENALIDOMIDE
     Indication: Diffuse large B-cell lymphoma
     Route: 048
     Dates: start: 202403
  2. REVLIMID [Suspect]
     Active Substance: LENALIDOMIDE
     Dosage: FREQ-EVERY OTHER DAY
     Route: 048
     Dates: start: 202403
  3. REVLIMID [Suspect]
     Active Substance: LENALIDOMIDE
     Route: 048
     Dates: start: 202403

REACTIONS (11)
  - Drug hypersensitivity [Unknown]
  - Off label use [Unknown]
  - Tremor [Unknown]
  - Asthenia [Unknown]
  - Cognitive disorder [Unknown]
  - Swelling [Unknown]
  - Pruritus [Unknown]
  - Confusional state [Unknown]
  - Memory impairment [Unknown]
  - Swelling face [Not Recovered/Not Resolved]
  - Abdominal distension [Not Recovered/Not Resolved]
